FAERS Safety Report 11759327 (Version 1)
Quarter: 2015Q4

REPORT INFORMATION
  Report Type: Spontaneous
  Country: US (occurrence: US)
  Receive Date: 20151120
  Receipt Date: 20151120
  Transmission Date: 20160304
  Serious: No
  Sender: FDA-Public Use
  Company Number: US-ELI_LILLY_AND_COMPANY-US201210002180

PATIENT
  Age: 78 Year
  Sex: Female

DRUGS (1)
  1. FORTEO [Suspect]
     Active Substance: TERIPARATIDE
     Indication: OSTEOPOROSIS
     Dosage: 1 DF, QD
     Route: 065
     Dates: start: 20120809

REACTIONS (7)
  - Bone pain [Recovered/Resolved]
  - Intentional product misuse [Unknown]
  - Fatigue [Recovered/Resolved]
  - Vision blurred [Recovered/Resolved]
  - Chest discomfort [Recovered/Resolved]
  - Back pain [Recovered/Resolved]
  - Malaise [Recovered/Resolved]

NARRATIVE: CASE EVENT DATE: 2012
